FAERS Safety Report 5610415-1 (Version None)
Quarter: 2008Q1

REPORT INFORMATION
  Report Type: 
  Country: None (occurrence: None)
  Receive Date: 20080128
  Receipt Date: 20080114
  Transmission Date: 20080703
  Serious: Yes (Hospitalization, Other)
  Sender: FDA-Public Use
  Company Number: 2008US000031

PATIENT
  Age: 64 Year
  Sex: Female
  Weight: 101.1 kg

DRUGS (8)
  1. AMEVIVE [Suspect]
     Indication: PSORIASIS
     Dosage: 15 MG, WEEKLY, INTRAMUSCULAR
     Route: 030
     Dates: start: 20041117, end: 20070829
  2. LASIX [Concomitant]
  3. BENICAR [Concomitant]
  4. COREG [Concomitant]
  5. INSULIN (INSULIN) [Concomitant]
  6. LEVOTHYROXINE SODIUM [Concomitant]
  7. AMIODARONE HCL [Concomitant]
  8. COUMADIN [Concomitant]

REACTIONS (7)
  - ASTHENIA [None]
  - CORONARY ARTERY OCCLUSION [None]
  - CORONARY ARTERY STENOSIS [None]
  - EJECTION FRACTION DECREASED [None]
  - GASTROOESOPHAGEAL REFLUX DISEASE [None]
  - NON-CARDIAC CHEST PAIN [None]
  - PERICARDIAL EFFUSION [None]
